FAERS Safety Report 14011173 (Version 1)
Quarter: 2017Q3

REPORT INFORMATION
  Report Type: Spontaneous
  Country: US (occurrence: US)
  Receive Date: 20170926
  Receipt Date: 20170926
  Transmission Date: 20171128
  Serious: No
  Sender: FDA-Public Use
  Company Number: US-CIPLA LTD.-2016US19143

PATIENT

DRUGS (3)
  1. LEVOTHYROXINE. [Concomitant]
     Active Substance: LEVOTHYROXINE
     Indication: HYPOTHYROIDISM
     Dosage: 0.075 MG, EVERY DAY IN THE MORNING BEFORE COFFEE
     Route: 065
     Dates: start: 2008
  2. ALENDRONATE [Suspect]
     Active Substance: ALENDRONATE SODIUM
     Indication: OSTEOPOROSIS
     Dosage: 70 MG, ONCE IN A WEEK (WEDNESDAY)
     Route: 048
     Dates: start: 20160921
  3. E3/E2/P4 [Concomitant]
     Indication: HORMONE THERAPY
     Dosage: 0.5/ 2.5/ 60 MG EVERY NIGHT
     Route: 065
     Dates: start: 2009

REACTIONS (6)
  - Dizziness [Recovered/Resolved]
  - Chest discomfort [Not Recovered/Not Resolved]
  - Myalgia [Not Recovered/Not Resolved]
  - Nausea [Recovered/Resolved]
  - Malaise [Recovered/Resolved]
  - Fatigue [Recovered/Resolved]

NARRATIVE: CASE EVENT DATE: 20160921
